FAERS Safety Report 18610971 (Version 1)
Quarter: 2020Q4

REPORT INFORMATION
  Report Type: Report from Study
  Country: US (occurrence: GB)
  Receive Date: 20201214
  Receipt Date: 20201214
  Transmission Date: 20210114
  Serious: Yes (Other)
  Sender: FDA-Public Use
  Company Number: US-TORRENT-00010560

PATIENT
  Age: 2 Month
  Sex: Male

DRUGS (1)
  1. LEVETIRACETAM. [Suspect]
     Active Substance: LEVETIRACETAM
     Indication: MYOCLONIC EPILEPSY
     Dosage: UNKNOWN

REACTIONS (3)
  - Choreoathetosis [Recovered/Resolved]
  - Loss of personal independence in daily activities [Unknown]
  - Fine motor skill dysfunction [Unknown]
